FAERS Safety Report 5159906-0 (Version None)
Quarter: 2006Q4

REPORT INFORMATION
  Report Type: 
  Country: None (occurrence: None)
  Receive Date: 20061129
  Receipt Date: 20060420
  Transmission Date: 20070319
  Serious: No
  Sender: FDA-Public Use
  Company Number: 2006-01585

PATIENT
  Age: 63 Year
  Sex: Female

DRUGS (10)
  1. BUPROPION HCL [Suspect]
     Indication: DEPRESSION
     Dosage: 100MG TWICE PER DAY
     Route: 048
     Dates: start: 20060405
  2. ACETAMINOPHEN AND HYDROCODONE BITARTRATE [Concomitant]
     Indication: BACK PAIN
     Dosage: 1TAB AS REQUIRED
     Route: 048
     Dates: start: 20060101
  3. GINKO BILOBA [Concomitant]
  4. MELATONIN [Concomitant]
  5. CAMOMILE [Concomitant]
  6. MULTI-VITAMIN [Concomitant]
  7. CALCIUM [Concomitant]
  8. FLAX SEED OIL [Concomitant]
  9. FOLATE [Concomitant]
  10. VITAMIN D [Concomitant]

REACTIONS (1)
  - COELIAC DISEASE [None]
